FAERS Safety Report 11941690 (Version 1)
Quarter: 2016Q1

REPORT INFORMATION
  Report Type: Spontaneous
  Country: US (occurrence: US)
  Receive Date: 20160123
  Receipt Date: 20160123
  Transmission Date: 20160526
  Serious: Yes (Death)
  Sender: FDA-Public Use
  Company Number: US-APOTEX-2016AP005710

PATIENT

DRUGS (2)
  1. SALICYLATES NOS [Suspect]
     Active Substance: UNSPECIFIED INGREDIENT
     Route: 048
  2. ATORVASTATIN CALCIUM. [Suspect]
     Active Substance: ATORVASTATIN CALCIUM
     Route: 048

REACTIONS (1)
  - Completed suicide [Fatal]
